FAERS Safety Report 9128735 (Version 1)
Quarter: 2013Q1

REPORT INFORMATION
  Report Type: Spontaneous
  Country: US (occurrence: US)
  Receive Date: 20130228
  Receipt Date: 20130228
  Transmission Date: 20140127
  Serious: No
  Sender: FDA-Public Use
  Company Number: US-ABBOTT-12P-163-1015765-00

PATIENT
  Sex: Male
  Weight: 36.32 kg

DRUGS (1)
  1. ANDROGEL [Suspect]
     Indication: ACCIDENTAL EXPOSURE TO PRODUCT

REACTIONS (9)
  - Body height increased [Not Recovered/Not Resolved]
  - Skin odour abnormal [Not Recovered/Not Resolved]
  - Hormone level abnormal [Unknown]
  - Accidental exposure to product [Not Recovered/Not Resolved]
  - Hair growth abnormal [Not Recovered/Not Resolved]
  - Genital disorder male [Not Recovered/Not Resolved]
  - Acne [Not Recovered/Not Resolved]
  - Aggression [Not Recovered/Not Resolved]
  - Precocious puberty [Unknown]
